FAERS Safety Report 12892352 (Version 1)
Quarter: 2016Q4

REPORT INFORMATION
  Report Type: Spontaneous
  Country: US (occurrence: US)
  Receive Date: 20161028
  Receipt Date: 20161028
  Transmission Date: 20170207
  Serious: Yes (Hospitalization, Other)
  Sender: FDA-Public Use
  Company Number: PHHY2016US147345

PATIENT
  Age: 14 Year
  Sex: Female

DRUGS (6)
  1. TACROLIMUS. [Suspect]
     Active Substance: TACROLIMUS
     Indication: IMMUNOSUPPRESSANT DRUG THERAPY
  2. PREDNISONE. [Suspect]
     Active Substance: PREDNISONE
     Indication: IMMUNOSUPPRESSANT DRUG THERAPY
  3. MYCOPHENOLIC ACID. [Suspect]
     Active Substance: MYCOPHENOLIC ACID
     Indication: RENAL TRANSPLANT
     Route: 065
  4. MYCOPHENOLIC ACID. [Suspect]
     Active Substance: MYCOPHENOLIC ACID
     Indication: IMMUNOSUPPRESSANT DRUG THERAPY
  5. PREDNISONE. [Suspect]
     Active Substance: PREDNISONE
     Indication: RENAL TRANSPLANT
     Dosage: 10 MG, QD
     Route: 048
  6. TACROLIMUS. [Suspect]
     Active Substance: TACROLIMUS
     Indication: RENAL TRANSPLANT
     Route: 065

REACTIONS (24)
  - Thrombocytopenia [Unknown]
  - Epstein-Barr virus infection [Unknown]
  - Cytomegalovirus infection [Unknown]
  - West Nile viral infection [Recovering/Resolving]
  - Pyrexia [Unknown]
  - Gait disturbance [Not Recovered/Not Resolved]
  - BK virus infection [Unknown]
  - Meningoencephalitis viral [Recovering/Resolving]
  - Neck pain [Unknown]
  - Seizure [Recovered/Resolved]
  - Clostridium difficile infection [Unknown]
  - Chills [Unknown]
  - Language disorder [Unknown]
  - Diarrhoea [Unknown]
  - Nystagmus [Not Recovered/Not Resolved]
  - Rash maculo-papular [Unknown]
  - Headache [Unknown]
  - Urinary retention [Unknown]
  - Leukopenia [Recovered/Resolved]
  - Agitation [Unknown]
  - Confusional state [Unknown]
  - Normochromic normocytic anaemia [Recovered/Resolved]
  - Dysarthria [Not Recovered/Not Resolved]
  - Back pain [Unknown]

NARRATIVE: CASE EVENT DATE: 2015
